FAERS Safety Report 7794632-0 (Version None)
Quarter: 2011Q4

REPORT INFORMATION
  Report Type: 
  Country: None (occurrence: None)
  Receive Date: 20111004
  Receipt Date: 20110927
  Transmission Date: 20120403
  Serious: Yes (Other)
  Sender: FDA-Public Use
  Company Number: JP-BAYER-2011-088438

PATIENT
  Age: 71 Year
  Sex: Female

DRUGS (12)
  1. MIGLITOL [Concomitant]
     Dosage: DAILY DOSE 150 MG
     Route: 048
  2. MUCODYNE [Concomitant]
     Dosage: DAILY DOSE 750 MG
     Route: 048
  3. MAGMITT [Concomitant]
     Dosage: DAILY DOSE 750 MG
     Route: 048
  4. LASIX [Concomitant]
     Dosage: DAILY DOSE 20 MG
     Route: 065
  5. LIPITOR [Concomitant]
     Dosage: DAILY DOSE 10 MG
     Route: 048
  6. YOKUKAN-SAN [Concomitant]
     Dosage: DAILY DOSE 7.5 G
     Route: 048
  7. NATEGLINIDE [Concomitant]
     Dosage: DAILY DOSE 270 MG
     Route: 048
  8. METFORMIN HCL [Concomitant]
     Dosage: DAILY DOSE 250 MG
     Route: 048
  9. GRAMALIL [Concomitant]
     Dosage: DAILY DOSE 62.5 MG
     Route: 048
  10. TEGRETOL [Concomitant]
     Dosage: DAILY DOSE 300 MG
     Route: 048
  11. AVELOX [Suspect]
     Indication: URINARY RETENTION
     Dosage: 400 MG, QD
     Route: 048
     Dates: start: 20110920
  12. RISPERDAL [Concomitant]
     Dosage: 0.5 MG, QD
     Route: 048

REACTIONS (1)
  - URINARY RETENTION [None]
